FAERS Safety Report 6761730-X (Version None)
Quarter: 2010Q2

REPORT INFORMATION
  Report Type: 
  Country: None (occurrence: None)
  Receive Date: 20100609
  Receipt Date: 20100528
  Transmission Date: 20101027
  Serious: Yes (Other)
  Sender: FDA-Public Use
  Company Number: CA-JNJFOC-20100503925

PATIENT
  Sex: Female
  Weight: 77.2 kg

DRUGS (6)
  1. REMICADE [Suspect]
     Indication: PSORIATIC ARTHROPATHY
     Route: 042
  2. REMICADE [Suspect]
     Route: 042
  3. SULFASALAZINE [Concomitant]
     Route: 065
  4. NOVO-DIFENAC [Concomitant]
     Route: 065
  5. NOVO-HYDRAZIDE [Concomitant]
     Route: 065
  6. METHOTREXATE [Concomitant]

REACTIONS (2)
  - GASTROINTESTINAL INFECTION [None]
  - INFLAMMATORY BOWEL DISEASE [None]
